FAERS Safety Report 4560838-7 (Version None)
Quarter: 2005Q1

REPORT INFORMATION
  Report Type: 
  Country: None (occurrence: None)
  Receive Date: 20050121
  Receipt Date: 20050106
  Transmission Date: 20050727
  Serious: No
  Sender: FDA-Public Use
  Company Number: 2005UW00361

PATIENT
  Age: 69 Year
  Sex: Female

DRUGS (8)
  1. CRESTOR [Suspect]
     Dosage: 40 MG DAILY PO
     Route: 048
  2. CALCIUM GLUCONATE [Concomitant]
  3. COENZYME Q10 [Concomitant]
  4. PREVACID [Concomitant]
  5. QVASOTEC [Concomitant]
  6. VITAMIN B COMPLEX CAP [Concomitant]
  7. VITAMIN E [Concomitant]
  8. VITAMIN C [Concomitant]

REACTIONS (2)
  - DIFFICULTY IN WALKING [None]
  - MUSCLE SPASMS [None]
